FAERS Safety Report 5328545-0 (Version None)
Quarter: 2007Q2

REPORT INFORMATION
  Report Type: 
  Country: None (occurrence: None)
  Receive Date: 20070518
  Receipt Date: 20070507
  Transmission Date: 20071010
  Serious: Yes (Hospitalization)
  Sender: FDA-Public Use
  Company Number: FR-JNJFOC-20070503961

PATIENT
  Age: 84 Year
  Sex: Female

DRUGS (16)
  1. TRAMADOL HCL [Suspect]
     Indication: AUTONOMIC NEUROPATHY
     Route: 048
  2. OMEPRAZOLE [Suspect]
     Indication: DRUG USE FOR UNKNOWN INDICATION
     Route: 048
  3. OLMIFON [Suspect]
     Indication: DRUG USE FOR UNKNOWN INDICATION
     Route: 048
  4. LAROXYL [Suspect]
     Indication: AUTONOMIC NEUROPATHY
     Route: 048
  5. COLCHIMAX [Suspect]
     Indication: DRUG USE FOR UNKNOWN INDICATION
     Route: 048
  6. AMLOR [Suspect]
     Indication: ESSENTIAL HYPERTENSION
     Route: 048
  7. INSULIN BASAL [Concomitant]
     Indication: DIABETES MELLITUS
     Route: 058
  8. KAYEXALATE [Concomitant]
     Route: 065
  9. LASIX [Concomitant]
     Route: 048
  10. PLAVIX [Concomitant]
     Route: 048
  11. TIMOPTIC [Concomitant]
     Route: 047
  12. UN-ALFA [Concomitant]
     Route: 048
  13. EMLA [Concomitant]
     Route: 065
  14. CALCIDIA [Concomitant]
     Route: 048
  15. ELISOR [Concomitant]
     Route: 048
  16. FORTIMEL [Concomitant]
     Indication: MEDICAL DIET
     Route: 048

REACTIONS (8)
  - ANAEMIA [None]
  - BLOOD UREA INCREASED [None]
  - CONFUSIONAL STATE [None]
  - FALL [None]
  - HYPERGLYCAEMIA [None]
  - HYPONATRAEMIA [None]
  - MALAISE [None]
  - ORTHOSTATIC HYPOTENSION [None]
